FAERS Safety Report 7074660-3 (Version None)
Quarter: 2010Q4

REPORT INFORMATION
  Report Type: 
  Country: None (occurrence: None)
  Receive Date: 20101029
  Receipt Date: 20101020
  Transmission Date: 20110411
  Serious: Yes (Disabling)
  Sender: FDA-Public Use
  Company Number: B0675909A

PATIENT
  Sex: Male

DRUGS (1)
  1. ATRIANCE [Suspect]
     Dosage: 1500MGM2 PER DAY
     Route: 065
     Dates: start: 20100809, end: 20100906

REACTIONS (3)
  - GUILLAIN-BARRE SYNDROME [None]
  - PERIPHERAL SENSORIMOTOR NEUROPATHY [None]
  - QUADRIPLEGIA [None]
